FAERS Safety Report 7756534 (Version 2)
Quarter: 2018Q4

REPORT INFORMATION
  Report Type: Spontaneous
  Country: JP (occurrence: JP)
  Receive Date: 20110112
  Receipt Date: 20181225
  Transmission Date: 20190205
  Serious: Yes (Death, Other)
  Sender: FDA-Public Use
  Company Number: PHHY2010JP73180

PATIENT
  Age: 84 Year
  Sex: Female
  Weight: 50 kg

DRUGS (13)
  1. NICERGOLINE [Concomitant]
     Active Substance: NICERGOLINE
     Indication: PRODUCT USED FOR UNKNOWN INDICATION
     Dosage: 3 DF, UNK
     Route: 048
     Dates: start: 20100914, end: 20101030
  2. MAGNESIUM OXIDE. [Concomitant]
     Active Substance: MAGNESIUM OXIDE
     Indication: PRODUCT USED FOR UNKNOWN INDICATION
     Route: 065
  3. ADALAT CC [Concomitant]
     Active Substance: NIFEDIPINE
     Indication: CEREBRAL INFARCTION
     Dosage: 2 DF, UNK
     Route: 048
     Dates: start: 20100827, end: 20101026
  4. TRIHEXYPHENIDYL HYDROCHLORIDE. [Concomitant]
     Active Substance: TRIHEXYPHENIDYL HYDROCHLORIDE
     Indication: PARKINSON^S DISEASE
     Dosage: 3 DF, UNK
     Route: 048
     Dates: start: 20101023, end: 20101030
  5. DIOVAN [Suspect]
     Active Substance: VALSARTAN
     Indication: HYPERTENSION
     Dosage: 160 MG, BID
     Route: 048
     Dates: start: 20100827, end: 20101030
  6. DIOVAN [Suspect]
     Active Substance: VALSARTAN
     Indication: CEREBROVASCULAR DISORDER
  7. SYMMETREL [Suspect]
     Active Substance: AMANTADINE HYDROCHLORIDE
     Indication: PRODUCT USED FOR UNKNOWN INDICATION
     Dosage: 100 MG, TID
     Route: 048
     Dates: start: 20101007, end: 20101026
  8. AMLODIPINE [Concomitant]
     Active Substance: AMLODIPINE BESYLATE
     Indication: PRODUCT USED FOR UNKNOWN INDICATION
     Route: 065
  9. NEUOMIL [Suspect]
     Active Substance: MAPROTILINE HYDROCHLORIDE
     Indication: PRODUCT USED FOR UNKNOWN INDICATION
     Route: 065
  10. RIVOTRIL [Concomitant]
     Active Substance: CLONAZEPAM
     Indication: TREMOR
     Dosage: 1.5 DF, UNK
     Route: 048
     Dates: start: 20101027, end: 20101030
  11. SEPAMIT [Concomitant]
     Active Substance: NIFEDIPINE
     Indication: CEREBRAL INFARCTION
     Dosage: 1 G, UNK
     Route: 048
     Dates: start: 20101027, end: 20101030
  12. MAGLAX [Concomitant]
     Active Substance: MAGNESIUM OXIDE
     Indication: CONSTIPATION
     Dosage: 3 DF, UNK
     Route: 048
     Dates: start: 20101005, end: 20101030
  13. SYMMETREL [Suspect]
     Active Substance: AMANTADINE HYDROCHLORIDE
     Dosage: 50 MG, TID
     Route: 048
     Dates: start: 20101027, end: 20101030

REACTIONS (4)
  - Sepsis [Fatal]
  - Disseminated intravascular coagulation [Fatal]
  - Pneumonia [Fatal]
  - Tremor [Unknown]

NARRATIVE: CASE EVENT DATE: 20101023
